FAERS Safety Report 23354497 (Version 1)
Quarter: 2024Q1

REPORT INFORMATION
  Report Type: Spontaneous
  Country: RO (occurrence: RO)
  Receive Date: 20240101
  Receipt Date: 20240101
  Transmission Date: 20240410
  Serious: Yes (Hospitalization, Other)
  Sender: FDA-Public Use
  Company Number: RO-LUNDBECK-DKLU3071927

PATIENT
  Age: 46 Year
  Sex: Male

DRUGS (3)
  1. ESCITALOPRAM [Suspect]
     Active Substance: ESCITALOPRAM OXALATE
     Indication: Depressive symptom
     Route: 065
  2. FLUOXETINE [Suspect]
     Active Substance: FLUOXETINE HYDROCHLORIDE
     Indication: Depression
     Route: 065
  3. VALPROATE SODIUM [Suspect]
     Active Substance: VALPROATE SODIUM
     Indication: Depressive symptom
     Route: 065

REACTIONS (9)
  - Coma [Recovered/Resolved]
  - Therapy partial responder [Unknown]
  - Therapy interrupted [Unknown]
  - Intentional overdose [Unknown]
  - Psychotic symptom [Recovered/Resolved]
  - Suicide attempt [Recovered/Resolved]
  - Loss of consciousness [Recovered/Resolved]
  - Social avoidant behaviour [Recovered/Resolved]
  - Depression [Recovered/Resolved]
